FAERS Safety Report 15721446 (Version 4)
Quarter: 2019Q1

REPORT INFORMATION
  Report Type: Spontaneous
  Country: FR (occurrence: FR)
  Receive Date: 20181214
  Receipt Date: 20190110
  Transmission Date: 20190417
  Serious: Yes (Death)
  Sender: FDA-Public Use
  Company Number: FR-TEVA-2018-FR-987158

PATIENT
  Age: 59 Year
  Sex: Male

DRUGS (2)
  1. METHOTREXATE TEVA 10 PERCENT [Suspect]
     Active Substance: METHOTREXATE
     Indication: NON-HODGKIN^S LYMPHOMA
     Dosage: FIRST COURSE
     Dates: start: 201809
  2. METHOTREXATE TEVA 10 PERCENT [Suspect]
     Active Substance: METHOTREXATE
     Dosage: SECOND COURSE
     Dates: start: 201810

REACTIONS (4)
  - Drug level increased [Fatal]
  - Death [Fatal]
  - Suspected product quality issue [Unknown]
  - Toxicity to various agents [Fatal]
